FAERS Safety Report 9633079 (Version 1)
Quarter: 2013Q4

REPORT INFORMATION
  Report Type: Spontaneous
  Country: US (occurrence: US)
  Receive Date: 20131018
  Receipt Date: 20131018
  Transmission Date: 20140711
  Serious: Yes (Death)
  Sender: FDA-Public Use
  Company Number: US-ASTRAZENECA-2013SE76799

PATIENT
  Age: 31 Year
  Sex: Male
  Weight: 68 kg

DRUGS (2)
  1. PRILOSEC [Suspect]
     Dosage: 30 TABLETS
     Route: 048
  2. COLCHICINE [Suspect]
     Dosage: 160 TABLETS

REACTIONS (2)
  - Overdose [Fatal]
  - Multi-organ failure [Fatal]
